FAERS Safety Report 10590852 (Version 2)
Quarter: 2015Q1

REPORT INFORMATION
  Report Type: Report from Study
  Country: US (occurrence: US)
  Receive Date: 20141118
  Receipt Date: 20150305
  Transmission Date: 20150720
  Serious: Yes (Death)
  Sender: FDA-Public Use
  Company Number: US-EXELIXIS-CABO-14004942

PATIENT
  Age: 76 Year
  Sex: Male

DRUGS (5)
  1. CABOZANTINIB [Suspect]
     Active Substance: CABOZANTINIB
     Indication: TRACHEAL CANCER
     Dosage: 60 MG, QD
     Route: 048
     Dates: start: 20141029, end: 20141105
  2. LUPRON [Concomitant]
     Active Substance: LEUPROLIDE ACETATE
  3. PANTOPRAZOLE [Concomitant]
     Active Substance: PANTOPRAZOLE SODIUM
  4. CIPRIL [Concomitant]
  5. MORPHINE [Concomitant]
     Active Substance: MORPHINE

REACTIONS (3)
  - Death [Fatal]
  - Drug intolerance [None]
  - Off label use [Unknown]

NARRATIVE: CASE EVENT DATE: 20141109
